FAERS Safety Report 23083741 (Version 1)
Quarter: 2023Q4

REPORT INFORMATION
  Report Type: Report from Study
  Country: US (occurrence: US)
  Receive Date: 20231019
  Receipt Date: 20231019
  Transmission Date: 20240110
  Serious: Yes (Other)
  Sender: FDA-Public Use
  Company Number: US-ABBVIE-5456477

PATIENT
  Sex: Male

DRUGS (1)
  1. RINVOQ [Suspect]
     Active Substance: UPADACITINIB
     Indication: Dermatitis atopic
     Route: 048
     Dates: start: 20230331

REACTIONS (5)
  - Vasectomy [Recovering/Resolving]
  - COVID-19 [Recovering/Resolving]
  - Discomfort [Unknown]
  - Impaired healing [Recovering/Resolving]
  - Post procedural swelling [Unknown]

NARRATIVE: CASE EVENT DATE: 20230101
